FAERS Safety Report 10880872 (Version 1)
Quarter: 2015Q1

REPORT INFORMATION
  Report Type: Spontaneous
  Country: US (occurrence: US)
  Receive Date: 20150303
  Receipt Date: 20150303
  Transmission Date: 20150721
  Serious: Yes (Other)
  Sender: FDA-Public Use
  Company Number: US-CIPLA LTD.-2015US01385

PATIENT

DRUGS (7)
  1. BUPARLISIB HYDROCHLORIDE [Suspect]
     Active Substance: BUPARLISIB HYDROCHLORIDE
     Indication: NEOPLASM
     Dosage: 50 MG PER DAY
     Route: 065
  2. BUPARLISIB HYDROCHLORIDE [Suspect]
     Active Substance: BUPARLISIB HYDROCHLORIDE
     Dosage: 80 MG PER DAY
  3. PACLITAXEL. [Suspect]
     Active Substance: PACLITAXEL
     Dosage: 80 MG/M2 (DAYS 1, 8, AND 15) ON A 28-DAY CYCLE WITHOUT GROWTH FACTOR SUPPORT
  4. CARBOPLATIN. [Suspect]
     Active Substance: CARBOPLATIN
     Indication: NEOPLASM
     Dosage: AUC 5, ON DAY 1 OF A 21 DAY CYCLE
     Route: 065
  5. PACLITAXEL. [Suspect]
     Active Substance: PACLITAXEL
     Indication: NEOPLASM
     Dosage: 175 MG/M2 , ON DAY 1 OF A 21 DAY CYCLE
     Route: 065
  6. BUPARLISIB HYDROCHLORIDE [Suspect]
     Active Substance: BUPARLISIB HYDROCHLORIDE
     Dosage: 100 MG PER DAY
  7. PEGFILGRASTIM [Suspect]
     Active Substance: PEGFILGRASTIM
     Indication: NEOPLASM
     Route: 065

REACTIONS (1)
  - Depressed mood [Unknown]
